FAERS Safety Report 6636787-7 (Version None)
Quarter: 2010Q1

REPORT INFORMATION
  Report Type: 
  Country: None (occurrence: None)
  Receive Date: 20100311
  Receipt Date: 20100305
  Transmission Date: 20100710
  Serious: Yes (Death, Other)
  Sender: FDA-Public Use
  Company Number: 2010US000743

PATIENT
  Age: 67 Year
  Sex: Male
  Weight: 129 kg

DRUGS (6)
  1. PROGRAF [Suspect]
     Indication: RENAL TRANSPLANT
     Dosage: 3 MG, BID, ORAL
     Route: 048
     Dates: start: 20001215, end: 20100225
  2. PREDNISONE [Concomitant]
  3. OMEPRAZOLE [Concomitant]
  4. ATENOLOL [Concomitant]
  5. HYTRIN [Concomitant]
  6. VITAMIN D NOS (VITAMIN D NOS) [Concomitant]

REACTIONS (2)
  - CARDIAC ARREST [None]
  - MENTAL STATUS CHANGES [None]
